FAERS Safety Report 6937415-3 (Version None)
Quarter: 2010Q3

REPORT INFORMATION
  Report Type: 
  Country: None (occurrence: None)
  Receive Date: 20100823
  Receipt Date: 20100814
  Transmission Date: 20110219
  Serious: Yes (Hospitalization, Other)
  Sender: FDA-Public Use
  Company Number: US-AMGEN-QUU428146

PATIENT
  Sex: Female
  Weight: 77.4 kg

DRUGS (1)
  1. NEULASTA [Suspect]
     Indication: PRODUCT USED FOR UNKNOWN INDICATION
     Route: 058
     Dates: start: 20100701

REACTIONS (2)
  - FEBRILE NEUTROPENIA [None]
  - LEGIONELLA TEST POSITIVE [None]
